FAERS Safety Report 4874745-3 (Version None)
Quarter: 2006Q1

REPORT INFORMATION
  Report Type: 
  Country: None (occurrence: None)
  Receive Date: 20060105
  Receipt Date: 20060105
  Transmission Date: 20060701
  Serious: Yes (Life-Threatening, Hospitalization)
  Sender: FDA-Public Use
  Company Number: None

PATIENT
  Age: 49 Year
  Sex: Female
  Weight: 77.5 kg

DRUGS (2)
  1. BACLOFEN [Suspect]
     Indication: FALL
     Dosage: 20 MG PO TID ; 20 MG PO TID PRN
     Route: 048
     Dates: start: 20051221
  2. BACLOFEN [Suspect]
     Indication: PAIN IN EXTREMITY
     Dosage: 20 MG PO TID ; 20 MG PO TID PRN
     Route: 048
     Dates: start: 20051221

REACTIONS (2)
  - DEPRESSED LEVEL OF CONSCIOUSNESS [None]
  - DIALYSIS [None]
